FAERS Safety Report 15859615 (Version 1)
Quarter: 2019Q1

REPORT INFORMATION
  Report Type: Spontaneous
  Country: US (occurrence: US)
  Receive Date: 20190123
  Receipt Date: 20190123
  Transmission Date: 20190417
  Serious: No
  Sender: FDA-Public Use
  Company Number: None

PATIENT
  Age: 61 Year
  Sex: Female
  Weight: 74.25 kg

DRUGS (3)
  1. MOVANTIK [Concomitant]
     Active Substance: NALOXEGOL OXALATE
  2. TEMAZEPAM 15MG CAPSULE [Suspect]
     Active Substance: TEMAZEPAM
     Indication: INSOMNIA
     Dosage: ?          QUANTITY:1 CAPSULE(S);?
     Route: 048
     Dates: start: 20170919, end: 20171001
  3. ZOVIRAX [Concomitant]
     Active Substance: ACYCLOVIR

REACTIONS (4)
  - Product availability issue [None]
  - Abnormal dreams [None]
  - Product substitution issue [None]
  - Insomnia [None]

NARRATIVE: CASE EVENT DATE: 20170919
